FAERS Safety Report 8177175-4 (Version None)
Quarter: 2012Q1

REPORT INFORMATION
  Report Type: 
  Country: None (occurrence: None)
  Receive Date: 20120301
  Receipt Date: 20120223
  Transmission Date: 20120608
  Serious: Yes (Death, Hospitalization, Other)
  Sender: FDA-Public Use
  Company Number: US-BAYER-200939844NA

PATIENT
  Age: 72 Year
  Sex: Male
  Weight: 93 kg

DRUGS (21)
  1. NITROGLYCERIN [Concomitant]
  2. LASIX [Concomitant]
  3. LOVENOX [Concomitant]
     Dosage: 95MG EVERY 12 HRS
     Route: 058
     Dates: start: 20061014
  4. INTEGRILIN [Concomitant]
     Dosage: 17MG BOLUS TIMES TWO, THEN 15CC/HR
     Route: 042
     Dates: start: 20061014, end: 20061018
  5. ALLOPURINOL [Concomitant]
     Dosage: 300MG TIMES TWO DOSES BEFORE SURGERY
     Route: 048
     Dates: start: 20061018
  6. RED BLOOD CELLS [Concomitant]
     Dosage: 4 UNITS
  7. HYDROCHLOROTHIAZIDE [Concomitant]
     Dosage: 5 MG, UNK
  8. LEVAQUIN [Concomitant]
     Dosage: 500MG DAILY
     Route: 042
     Dates: start: 20061019
  9. METOPROLOL SUCCINATE [Concomitant]
     Dosage: 50MG TWICE DAILY
     Route: 048
     Dates: start: 20061014
  10. FOSINOPRIL SODIUM [Concomitant]
     Dosage: 20MG TWICE DAILY, LONG TERM
     Route: 048
  11. LOPRESSOR [Concomitant]
  12. PREDNISONE [Concomitant]
  13. AMICAR [Concomitant]
     Dosage: 10 MG, BID
     Dates: start: 20061024
  14. ATROVENT [Concomitant]
     Dosage: 4 PUFF/4 TIMES DAILY
     Route: 045
     Dates: start: 20061018
  15. AMIODARONE HCL [Concomitant]
     Dosage: 400MG TWICE DAILY
     Route: 048
     Dates: start: 20061017
  16. LISINOPRIL [Concomitant]
     Dosage: 20MG TWICE DAILY
     Route: 048
     Dates: start: 20061015
  17. ACETYLSALICYLIC ACID SRT [Concomitant]
     Dosage: 81MG
     Route: 048
     Dates: start: 20061014
  18. CARDIZEM [Concomitant]
  19. TRASYLOL [Suspect]
     Indication: CORONARY ARTERY BYPASS
     Dosage: UNK
     Route: 042
     Dates: start: 20061015
  20. ACETYLSALICYLIC ACID SRT [Concomitant]
     Dosage: 325MG, LONG TERM
     Route: 048
  21. CARDURA [Concomitant]
     Dosage: 6MG TOTAL DAILY, LONG-TERM
     Route: 048

REACTIONS (13)
  - STRESS [None]
  - PAIN [None]
  - FEAR [None]
  - DEATH [None]
  - RENAL IMPAIRMENT [None]
  - ANXIETY [None]
  - RENAL INJURY [None]
  - EMOTIONAL DISTRESS [None]
  - ANHEDONIA [None]
  - INJURY [None]
  - RENAL FAILURE [None]
  - MULTI-ORGAN FAILURE [None]
  - UNEVALUABLE EVENT [None]
